FAERS Safety Report 5441648-5 (Version None)
Quarter: 2007Q3

REPORT INFORMATION
  Report Type: 
  Country: None (occurrence: None)
  Receive Date: 20070904
  Receipt Date: 20070827
  Transmission Date: 20080115
  Serious: Yes (Disabling, Other)
  Sender: FDA-Public Use
  Company Number: GB-AVENTIS-200717324GDDC

PATIENT
  Age: 51 Year
  Sex: Female
  Weight: 89.4 kg

DRUGS (8)
  1. LANTUS [Suspect]
     Indication: DIABETES MELLITUS
     Route: 058
     Dates: start: 20060601
  2. ASPIRIN [Concomitant]
     Dates: start: 20020101
  3. FRUSEMIDE [Concomitant]
     Route: 048
  4. IRBESARTAN [Concomitant]
     Indication: HYPERTENSION
  5. METFORMIN [Concomitant]
  6. NOVORAPID [Concomitant]
     Route: 058
  7. SIMVASTATIN [Concomitant]
     Dates: start: 20020101
  8. LEVOTHYROXINE SODIUM [Concomitant]
     Indication: HYPOTHYROIDISM
     Route: 048
     Dates: start: 20020101

REACTIONS (1)
  - OPTIC NEURITIS [None]
